FAERS Safety Report 6576261-X (Version None)
Quarter: 2010Q1

REPORT INFORMATION
  Report Type: 
  Country: None (occurrence: None)
  Receive Date: 20100210
  Receipt Date: 20100204
  Transmission Date: 20100710
  Serious: Yes (Hospitalization)
  Sender: FDA-Public Use
  Company Number: US-BIOGENIDEC-2009BI023814

PATIENT
  Age: 52 Year
  Sex: Female

DRUGS (13)
  1. AVONEX [Suspect]
     Indication: MULTIPLE SCLEROSIS
     Route: 030
     Dates: start: 20060727, end: 20090717
  2. AVONEX [Suspect]
     Route: 030
     Dates: start: 20060501
  3. PREDNISONE [Concomitant]
     Route: 048
  4. TRAZODONE [Concomitant]
     Route: 048
  5. GABAPENTIN [Concomitant]
     Route: 048
  6. TOPAMAX [Concomitant]
     Indication: HEADACHE
     Route: 048
     Dates: start: 20090825
  7. IBUPROFEN [Concomitant]
     Route: 048
  8. NAPROXEN [Concomitant]
     Indication: HEADACHE
     Route: 048
  9. FLUOXETINE [Concomitant]
     Indication: DEPRESSION
     Route: 048
  10. FLUOXETINE [Concomitant]
     Indication: ANXIETY
     Route: 048
  11. IRON [Concomitant]
     Route: 048
  12. VITAMIN C [Concomitant]
     Route: 048
  13. ACIDOPHILUS [Concomitant]
     Route: 048

REACTIONS (9)
  - DEVICE RELATED SEPSIS [None]
  - HAEMATOCRIT DECREASED [None]
  - INFECTION [None]
  - INFECTIVE THROMBOSIS [None]
  - INJECTION SITE HAEMATOMA [None]
  - MUSCLE ABSCESS [None]
  - PROCEDURAL NAUSEA [None]
  - PROCEDURAL VOMITING [None]
  - WRONG TECHNIQUE IN DRUG USAGE PROCESS [None]
